FAERS Safety Report 5787321-5 (Version None)
Quarter: 2008Q2

REPORT INFORMATION
  Report Type: 
  Country: None (occurrence: None)
  Receive Date: 20080625
  Receipt Date: 20071023
  Transmission Date: 20081010
  Serious: No
  Sender: FDA-Public Use
  Company Number: US-ASTRAZENECA-2007UW20225

PATIENT
  Age: 2 Year
  Sex: Female
  Weight: 13.6 kg

DRUGS (3)
  1. PULMICORT RESPULES [Suspect]
     Indication: ASTHMA
     Route: 055
     Dates: start: 20070801, end: 20070812
  2. PULMICORT RESPULES [Suspect]
     Route: 055
  3. SINGULAIR [Concomitant]

REACTIONS (4)
  - COUGH [None]
  - PHARMACEUTICAL PRODUCT COMPLAINT [None]
  - SINUSITIS [None]
  - VOMITING [None]
